FAERS Safety Report 18159293 (Version 3)
Quarter: 2020Q4

REPORT INFORMATION
  Report Type: Spontaneous
  Country: PL (occurrence: PL)
  Receive Date: 20200817
  Receipt Date: 20201230
  Transmission Date: 20210113
  Serious: Yes (Life-Threatening, Hospitalization, Other)
  Sender: FDA-Public Use
  Company Number: PL-MYLANLABS-2020M1070735

PATIENT
  Age: 28 Year
  Sex: Male

DRUGS (5)
  1. AMOXICILLIN/CLAVULANIC ACID [Suspect]
     Active Substance: AMOXICILLIN\CLAVULANIC ACID
     Indication: PANCREATITIS ACUTE
     Dosage: UNK
  2. METRONIDAZOLE. [Suspect]
     Active Substance: METRONIDAZOLE
     Indication: CLOSTRIDIUM DIFFICILE INFECTION
     Dosage: 500 MILLIGRAM, TID
     Route: 042
  3. AMOXICILLIN/CLAVULANIC ACID [Suspect]
     Active Substance: AMOXICILLIN\CLAVULANIC ACID
     Indication: PROPHYLAXIS
  4. VANCOMYCIN [Suspect]
     Active Substance: VANCOMYCIN
     Indication: CLOSTRIDIUM DIFFICILE INFECTION
     Dosage: 125 MILLIGRAM, QID, 4 X 125 MG
     Route: 048
  5. VANCOMYCIN [Suspect]
     Active Substance: VANCOMYCIN
     Indication: CLOSTRIDIUM DIFFICILE INFECTION
     Dosage: 500 MILLIGRAM, QID
     Route: 054

REACTIONS (14)
  - Septic shock [Recovering/Resolving]
  - Product use in unapproved indication [Unknown]
  - Megacolon [Recovering/Resolving]
  - Ileus paralytic [Recovering/Resolving]
  - Acute kidney injury [Recovering/Resolving]
  - Escherichia infection [Recovering/Resolving]
  - Systemic inflammatory response syndrome [Recovering/Resolving]
  - Gastroenteritis [Recovering/Resolving]
  - Nervous system disorder [Unknown]
  - Clostridium difficile infection [Recovering/Resolving]
  - Cardio-respiratory distress [Unknown]
  - Respiratory failure [Recovering/Resolving]
  - Drug ineffective [Unknown]
  - Medication error [Recovered/Resolved]
